FAERS Safety Report 21287379 (Version 1)
Quarter: 2022Q3

REPORT INFORMATION
  Report Type: Spontaneous
  Country: US (occurrence: US)
  Receive Date: 20220902
  Receipt Date: 20220902
  Transmission Date: 20221027
  Serious: No
  Sender: FDA-Public Use
  Company Number: US-ABBVIE-22K-163-4324630-00

PATIENT
  Sex: Male

DRUGS (1)
  1. IMBRUVICA [Suspect]
     Active Substance: IBRUTINIB
     Indication: Chronic lymphocytic leukaemia
     Route: 048

REACTIONS (10)
  - Dry mouth [Unknown]
  - Dizziness [Unknown]
  - Dyspnoea [Unknown]
  - Androgen deficiency [Unknown]
  - Wheezing [Unknown]
  - Musculoskeletal chest pain [Not Recovered/Not Resolved]
  - Muscle tightness [Unknown]
  - Muscle spasms [Unknown]
  - Arthralgia [Not Recovered/Not Resolved]
  - Breast pain [Not Recovered/Not Resolved]
